FAERS Safety Report 21842766 (Version 2)
Quarter: 2023Q1

REPORT INFORMATION
  Report Type: Spontaneous
  Country: US (occurrence: US)
  Receive Date: 20230110
  Receipt Date: 20230118
  Transmission Date: 20230417
  Serious: No
  Sender: FDA-Public Use
  Company Number: US-PFIZER INC-202300004919

PATIENT
  Age: 76 Year
  Sex: Female

DRUGS (1)
  1. PAXLOVID [Suspect]
     Active Substance: NIRMATRELVIR\RITONAVIR
     Indication: COVID-19 treatment
     Dosage: UNK
     Dates: start: 20221231

REACTIONS (7)
  - Malaise [Recovering/Resolving]
  - Bone pain [Recovering/Resolving]
  - Insomnia [Recovering/Resolving]
  - Oropharyngeal discomfort [Recovering/Resolving]
  - Product dose omission issue [Unknown]
  - Nasal congestion [Not Recovered/Not Resolved]
  - Oropharyngeal pain [Not Recovered/Not Resolved]
